FAERS Safety Report 17885293 (Version 2)
Quarter: 2021Q2

REPORT INFORMATION
  Report Type: Spontaneous
  Country: US (occurrence: US)
  Receive Date: 20200611
  Receipt Date: 20210629
  Transmission Date: 20210717
  Serious: No
  Sender: FDA-Public Use
  Company Number: US-TEVA-2020-US-1247203

PATIENT
  Age: 54 Year
  Sex: Female

DRUGS (8)
  1. SYNTHROID TAB 88MCG [Concomitant]
     Route: 065
  2. MULTIVITAMIN CAP [Concomitant]
     Route: 065
  3. FISH OIL CAP 1000 MG [Concomitant]
     Route: 065
  4. LIDO/PRILOCN CRE 2.5?2.5% [Concomitant]
     Dosage: LIDO/PRILOCN CRE 2.5?2.5%
     Route: 065
  5. CALCIFEROL DRO 8000/ML [Concomitant]
     Dosage: CALCIFEROL DRO 8000/ML
     Route: 065
  6. SYNTHROID TAB 50 MCG [Concomitant]
     Route: 065
  7. BACLOFEN TAB 10 MG [Concomitant]
     Route: 065
  8. COPAXONE [Suspect]
     Active Substance: GLATIRAMER ACETATE
     Indication: MULTIPLE SCLEROSIS
     Route: 058
     Dates: start: 20181109

REACTIONS (2)
  - Paraesthesia [Not Recovered/Not Resolved]
  - Facial pain [Not Recovered/Not Resolved]
